FAERS Safety Report 7308937-0 (Version None)
Quarter: 2011Q1

REPORT INFORMATION
  Report Type: 
  Country: None (occurrence: None)
  Receive Date: 20110223
  Receipt Date: 20110216
  Transmission Date: 20110831
  Serious: Yes (Other)
  Sender: FDA-Public Use
  Company Number: KR-PFIZER INC-2011033806

PATIENT
  Sex: Male

DRUGS (1)
  1. DEPO-MEDROL [Suspect]
     Indication: JOINT INJURY
     Dosage: 1 TIME INJECTION
     Dates: start: 19840911, end: 19840911

REACTIONS (3)
  - NECROSIS [None]
  - JOINT SWELLING [None]
  - NEOPLASM [None]
